FAERS Safety Report 24058360 (Version 1)
Quarter: 2024Q3

REPORT INFORMATION
  Report Type: Spontaneous
  Country: US (occurrence: US)
  Receive Date: 20240708
  Receipt Date: 20240708
  Transmission Date: 20241016
  Serious: No
  Sender: ROCHE
  Company Number: US-ROCHE-10000016820

PATIENT
  Age: 6 Year
  Sex: Female

DRUGS (12)
  1. MYCOPHENOLATE MOFETIL [Suspect]
     Active Substance: MYCOPHENOLATE MOFETIL
     Indication: Blau syndrome
     Route: 065
  2. TOCILIZUMAB [Suspect]
     Active Substance: TOCILIZUMAB
     Indication: Blau syndrome
     Route: 065
  3. TOFACITINIB [Concomitant]
     Active Substance: TOFACITINIB
  4. PREDNISONE [Concomitant]
     Active Substance: PREDNISONE
  5. METHOTREXATE [Concomitant]
     Active Substance: METHOTREXATE
  6. INFLIXIMAB [Concomitant]
     Active Substance: INFLIXIMAB
  7. NAPROXEN [Concomitant]
     Active Substance: NAPROXEN
  8. ETANERCEPT [Concomitant]
     Active Substance: ETANERCEPT
  9. CANAKINUMAB [Concomitant]
     Active Substance: CANAKINUMAB
  10. RILONACEPT [Concomitant]
     Active Substance: RILONACEPT
  11. ANAKINRA [Concomitant]
     Active Substance: ANAKINRA
  12. GOLIMUMAB [Concomitant]
     Active Substance: GOLIMUMAB

REACTIONS (2)
  - Drug ineffective [Unknown]
  - Meningitis aseptic [Unknown]
